FAERS Safety Report 17581346 (Version 2)
Quarter: 2020Q2

REPORT INFORMATION
  Report Type: Report from Study
  Country: US (occurrence: US)
  Receive Date: 20200325
  Receipt Date: 20200511
  Transmission Date: 20200713
  Serious: Yes (Death, Life-Threatening, Hospitalization)
  Sender: FDA-Public Use
  Company Number: US-BAXTER-2020BAX006349

PATIENT
  Age: 74 Year
  Sex: Female
  Weight: 47.3 kg

DRUGS (57)
  1. LORAZEPAM. [Concomitant]
     Active Substance: LORAZEPAM
     Route: 042
     Dates: start: 20191209, end: 20191209
  2. POTASSIUM CHLORIDE. [Concomitant]
     Active Substance: POTASSIUM CHLORIDE
     Route: 042
     Dates: start: 20191216, end: 20191216
  3. ACETAMINOPHEN. [Concomitant]
     Active Substance: ACETAMINOPHEN
     Indication: ARTHRALGIA
     Route: 042
     Dates: start: 20191209, end: 20191209
  4. HYDROMORPHONE [Concomitant]
     Active Substance: HYDROMORPHONE
     Indication: PREMEDICATION
     Route: 042
     Dates: start: 20191217, end: 20191217
  5. PANTOPRAZOLE [Concomitant]
     Active Substance: PANTOPRAZOLE
     Route: 042
     Dates: start: 20191221, end: 20191229
  6. SUCRALFATE. [Concomitant]
     Active Substance: SUCRALFATE
     Dosage: FREQUENCY: PRN
     Route: 048
     Dates: start: 20191205, end: 20191209
  7. MAGNESIUM/SOY PROTEIN CHELATE [Concomitant]
     Dosage: FORM: TABLET, DOSE: 2 TABLETS
     Route: 048
     Dates: start: 20191210, end: 20191218
  8. POTASSIUM CHLORIDE. [Concomitant]
     Active Substance: POTASSIUM CHLORIDE
     Route: 042
     Dates: start: 20191218, end: 20191218
  9. RAMELTEON [Concomitant]
     Active Substance: RAMELTEON
     Indication: INSOMNIA
     Dosage: FREQUENCY: PRN
     Route: 048
     Dates: start: 20191117, end: 20191209
  10. ONDANSETRON [Concomitant]
     Active Substance: ONDANSETRON
     Route: 042
     Dates: start: 20191210, end: 20191210
  11. LIDOCAINE. [Concomitant]
     Active Substance: LIDOCAINE
     Indication: PROPHYLAXIS
     Route: 042
     Dates: start: 20191209, end: 20191209
  12. AMLODIPINE BESYLATE. [Concomitant]
     Active Substance: AMLODIPINE BESYLATE
     Indication: HYPERTENSION
     Route: 048
     Dates: start: 20191112, end: 20191225
  13. ACICLOVIR [Concomitant]
     Active Substance: ACYCLOVIR
     Indication: ANTIVIRAL PROPHYLAXIS
     Route: 048
     Dates: start: 20191112, end: 20191227
  14. PANTOPRAZOLE [Concomitant]
     Active Substance: PANTOPRAZOLE
     Indication: NAUSEA
     Route: 048
     Dates: start: 20191113, end: 20191121
  15. SUCRALFATE. [Concomitant]
     Active Substance: SUCRALFATE
     Indication: NAUSEA
     Dosage: FREQUENCY: PRN
     Route: 048
     Dates: start: 20191112, end: 20191205
  16. MAGNESIUM SULFATE. [Concomitant]
     Active Substance: MAGNESIUM SULFATE
     Route: 042
     Dates: start: 20191216, end: 20191216
  17. MAGNESIUM SULFATE. [Concomitant]
     Active Substance: MAGNESIUM SULFATE
     Route: 042
     Dates: start: 20191212, end: 20191212
  18. POTASSIUM CHLORIDE. [Concomitant]
     Active Substance: POTASSIUM CHLORIDE
     Route: 048
     Dates: start: 20191211, end: 20191211
  19. OXYCODONE [Concomitant]
     Active Substance: OXYCODONE
     Indication: PAIN IN EXTREMITY
     Route: 048
     Dates: start: 20191209, end: 20191209
  20. OXYCODONE [Concomitant]
     Active Substance: OXYCODONE
     Indication: ARTHRALGIA
     Dosage: DOSE: 5 OR 10 MG
     Route: 048
     Dates: start: 20191209, end: 20191228
  21. CYCLOPHOSPHAMIDE FOR INJECTION, USP [Suspect]
     Active Substance: CYCLOPHOSPHAMIDE
     Dosage: LDC CHEMOTHERAPY
     Route: 042
     Dates: start: 20191113, end: 20191115
  22. BUPROPION. [Concomitant]
     Active Substance: BUPROPION
     Indication: DEPRESSION
     Route: 048
  23. ESCITALOPRAM [Concomitant]
     Active Substance: ESCITALOPRAM OXALATE
     Indication: DEPRESSION
     Route: 048
     Dates: start: 20191113, end: 20191227
  24. MAGNESIUM SULFATE. [Concomitant]
     Active Substance: MAGNESIUM SULFATE
     Route: 042
     Dates: start: 20191218, end: 20191218
  25. LORAZEPAM. [Concomitant]
     Active Substance: LORAZEPAM
     Indication: NAUSEA
     Dosage: FREQUENCY: PRN
     Route: 048
     Dates: start: 20191205, end: 20191209
  26. LORAZEPAM. [Concomitant]
     Active Substance: LORAZEPAM
     Route: 042
     Dates: start: 20191215, end: 20191215
  27. MAGNESIUM/SOY PROTEIN CHELATE [Concomitant]
     Dosage: FORM: TABLET, DOSE: 6 TABLETS
     Route: 048
     Dates: start: 20191218, end: 20191228
  28. POTASSIUM CHLORIDE. [Concomitant]
     Active Substance: POTASSIUM CHLORIDE
     Route: 042
     Dates: start: 20191212, end: 20191212
  29. ONDANSETRON [Concomitant]
     Active Substance: ONDANSETRON
     Indication: NAUSEA
     Dosage: FREQUENCY: PRN
     Route: 048
     Dates: start: 20191210, end: 20191218
  30. PANTOPRAZOLE [Concomitant]
     Active Substance: PANTOPRAZOLE
     Route: 048
     Dates: start: 20191126, end: 20191128
  31. LORAZEPAM. [Concomitant]
     Active Substance: LORAZEPAM
     Indication: PREMEDICATION
     Dosage: FREQUENCY: PRN
     Route: 048
     Dates: start: 20191216, end: 20191227
  32. ONDANSETRON [Concomitant]
     Active Substance: ONDANSETRON
     Indication: VOMITING
     Route: 042
     Dates: start: 20191209, end: 20191209
  33. MICAFUNGIN SODIUM [Concomitant]
     Active Substance: MICAFUNGIN SODIUM
     Indication: ANTIFUNGAL PROPHYLAXIS
     Route: 042
     Dates: start: 20191212, end: 20191224
  34. HYDROMORPHONE [Concomitant]
     Active Substance: HYDROMORPHONE
     Indication: PROPHYLAXIS
     Route: 042
     Dates: start: 20191209, end: 20191209
  35. CHOLECALCIFEROL [Concomitant]
     Active Substance: CHOLECALCIFEROL
     Indication: SUPPLEMENTATION THERAPY
     Route: 048
     Dates: start: 20191218, end: 20191227
  36. CYCLOPHOSPHAMIDE FOR INJECTION, USP [Suspect]
     Active Substance: CYCLOPHOSPHAMIDE
     Indication: MANTLE CELL LYMPHOMA
     Dosage: LDC CHEMOTHERAPY
     Route: 042
     Dates: start: 20191018, end: 20191018
  37. FLUDARABINE [Suspect]
     Active Substance: FLUDARABINE PHOSPHATE
     Indication: MANTLE CELL LYMPHOMA
     Dosage: INJECTION FOR INFUSION, LDC CHEMOTHERAPY
     Route: 042
     Dates: start: 20191113, end: 20191115
  38. LORAZEPAM. [Concomitant]
     Active Substance: LORAZEPAM
     Route: 042
     Dates: start: 20191217, end: 20191217
  39. POTASSIUM CHLORIDE. [Concomitant]
     Active Substance: POTASSIUM CHLORIDE
     Indication: HYPOKALAEMIA
     Route: 042
     Dates: start: 20191213, end: 20191213
  40. LOPERAMIDE [Concomitant]
     Active Substance: LOPERAMIDE
     Indication: PROPHYLAXIS AGAINST DIARRHOEA
     Dosage: FREQUENCY: PRN
     Route: 048
     Dates: start: 20191118, end: 20191209
  41. PROCHLORPERAZINE. [Concomitant]
     Active Substance: PROCHLORPERAZINE
     Route: 042
     Dates: start: 20191209, end: 20191209
  42. ATOVAQUONE. [Concomitant]
     Active Substance: ATOVAQUONE
     Indication: ANTIFUNGAL PROPHYLAXIS
     Route: 048
     Dates: start: 20191202, end: 20191229
  43. ACETAMINOPHEN. [Concomitant]
     Active Substance: ACETAMINOPHEN
     Indication: PAIN IN EXTREMITY
  44. OXYCODONE [Concomitant]
     Active Substance: OXYCODONE
     Indication: PAIN IN EXTREMITY
  45. CALCIUM CARBONATE. [Concomitant]
     Active Substance: CALCIUM CARBONATE
     Indication: HYPOCALCAEMIA
     Route: 048
     Dates: start: 20191218, end: 20191227
  46. MAGNESIUM HYDROXIDE. [Concomitant]
     Active Substance: MAGNESIUM HYDROXIDE
     Indication: CONSTIPATION PROPHYLAXIS
     Dosage: FREQUENCY: PRN
     Route: 048
     Dates: start: 20191218, end: 20191218
  47. PANTOPRAZOLE [Concomitant]
     Active Substance: PANTOPRAZOLE
     Route: 048
     Dates: start: 20191204, end: 20191221
  48. MAGNESIUM SULFATE. [Concomitant]
     Active Substance: MAGNESIUM SULFATE
     Route: 042
     Dates: start: 20191218, end: 20191218
  49. MAGNESIUM/SOY PROTEIN CHELATE [Concomitant]
     Dosage: FORM: TABLET, DOSE: 2 TABLETS
     Route: 048
     Dates: start: 20191211, end: 20191211
  50. MAGNESIUM/SOY PROTEIN CHELATE [Concomitant]
     Dosage: FORM: TABLET, DOSE: 3 TABLETS
     Route: 048
     Dates: start: 20191215, end: 20191215
  51. OXYCODONE [Concomitant]
     Active Substance: OXYCODONE
     Indication: HEADACHE
  52. MAGNESIUM SULFATE. [Concomitant]
     Active Substance: MAGNESIUM SULFATE
     Indication: HYPOMAGNESAEMIA
     Route: 042
     Dates: start: 20191212, end: 20191212
  53. LORAZEPAM. [Concomitant]
     Active Substance: LORAZEPAM
     Indication: PROPHYLAXIS
     Dosage: FREQUENCY: PRN
     Route: 048
     Dates: start: 20191214, end: 20191214
  54. MAGNESIUM/SOY PROTEIN CHELATE [Concomitant]
     Indication: HYPOMAGNESAEMIA
     Dosage: FORM: TABLET, DOSE: 2 TABLETS
     Route: 048
     Dates: start: 20191116, end: 20191209
  55. PROCHLORPERAZINE. [Concomitant]
     Active Substance: PROCHLORPERAZINE
     Indication: NAUSEA
     Dosage: FREQUENCY: PRN
     Route: 048
     Dates: start: 20191205, end: 20191209
  56. FENTANYL. [Concomitant]
     Active Substance: FENTANYL
     Indication: BACK PAIN
     Dosage: FORM: POULTICE OR PATCH, 1 PATCH, ROUTE: TD
     Route: 050
     Dates: start: 20191204, end: 20191213
  57. FILGRASTIM [Concomitant]
     Active Substance: FILGRASTIM
     Indication: NEUTROPENIA
     Route: 058
     Dates: start: 20191213, end: 20191228

REACTIONS (4)
  - Encephalitis [Fatal]
  - Lethargy [Not Recovered/Not Resolved]
  - Meningitis cryptococcal [Fatal]
  - Cardiac arrest [Fatal]

NARRATIVE: CASE EVENT DATE: 20191222
